FAERS Safety Report 5839936-3 (Version None)
Quarter: 2008Q3

REPORT INFORMATION
  Report Type: 
  Country: None (occurrence: None)
  Receive Date: 20080807
  Receipt Date: 20080725
  Transmission Date: 20090109
  Serious: Yes (Death)
  Sender: FDA-Public Use
  Company Number: 2008AL003589

PATIENT
  Age: 74 Year
  Sex: Male
  Weight: 72.1219 kg

DRUGS (6)
  1. DIGOXIN [Suspect]
     Indication: CARDIAC FAILURE CONGESTIVE
     Dosage: 0.12MG DAILY PO
     Route: 048
  2. SYNTHROID [Concomitant]
  3. COUMADIN [Concomitant]
  4. TOPROL-XL [Concomitant]
  5. SPIRONOLACTONE [Concomitant]
  6. LASIX [Concomitant]

REACTIONS (6)
  - ATRIAL FIBRILLATION [None]
  - FAILURE TO THRIVE [None]
  - FATIGUE [None]
  - PLEURAL EFFUSION [None]
  - SLEEP APNOEA SYNDROME [None]
  - SOMNOLENCE [None]
